FAERS Safety Report 10192222 (Version 2)
Quarter: 2014Q2

REPORT INFORMATION
  Report Type: Spontaneous
  Country: US (occurrence: US)
  Receive Date: 20140523
  Receipt Date: 20140604
  Transmission Date: 20141212
  Serious: Yes (Other)
  Sender: FDA-Public Use
  Company Number: US-DYAX CORP.-2014DX000082

PATIENT
  Age: 45 Year
  Sex: Female
  Weight: 71.73 kg

DRUGS (8)
  1. KALBITOR [Suspect]
     Indication: HEREDITARY ANGIOEDEMA
     Route: 058
     Dates: start: 20140513, end: 20140513
  2. KALBITOR [Suspect]
     Route: 058
     Dates: start: 20140520, end: 20140520
  3. KALBITOR [Suspect]
     Route: 058
     Dates: start: 20140319
  4. BERINERT [Concomitant]
     Indication: HEREDITARY ANGIOEDEMA
     Route: 065
  5. EFFEXOR [Concomitant]
     Indication: PRODUCT USED FOR UNKNOWN INDICATION
     Route: 065
  6. LEVOTHYROXINE [Concomitant]
     Indication: PRODUCT USED FOR UNKNOWN INDICATION
     Route: 065
  7. VISTARIL [Concomitant]
     Indication: PRODUCT USED FOR UNKNOWN INDICATION
     Route: 065
  8. VITAMIN D [Concomitant]
     Indication: PRODUCT USED FOR UNKNOWN INDICATION
     Route: 065

REACTIONS (6)
  - Hypersensitivity [Recovered/Resolved]
  - Hereditary angioedema [Recovered/Resolved]
  - Emotional distress [Unknown]
  - Off label use [Unknown]
  - Incorrect route of drug administration [Recovered/Resolved]
  - Drug administration error [Recovered/Resolved]
